FAERS Safety Report 5786600-5 (Version None)
Quarter: 2008Q2

REPORT INFORMATION
  Report Type: 
  Country: None (occurrence: None)
  Receive Date: 20080624
  Receipt Date: 20080613
  Transmission Date: 20081010
  Serious: Yes (Other)
  Sender: FDA-Public Use
  Company Number: US-PFIZER INC-2008050547

PATIENT
  Sex: Male
  Weight: 104.3 kg

DRUGS (3)
  1. NARDIL [Suspect]
     Indication: ANXIETY
  2. NARDIL [Suspect]
     Indication: DEPRESSION
  3. LORTAB [Suspect]
     Indication: BACK PAIN
     Dosage: TEXT:10/500 MG-FREQ:PRN
     Route: 048

REACTIONS (4)
  - ACCIDENT [None]
  - BACK PAIN [None]
  - DIZZINESS [None]
  - FEELING OF RELAXATION [None]
